FAERS Safety Report 6134024-3 (Version None)
Quarter: 2009Q1

REPORT INFORMATION
  Report Type: 
  Country: None (occurrence: None)
  Receive Date: 20090217
  Receipt Date: 20081230
  Transmission Date: 20090719
  Serious: No
  Sender: FDA-Public Use
  Company Number: AEUSA200800306

PATIENT
  Sex: Female

DRUGS (1)
  1. PROLASTIN [Suspect]
     Indication: ALPHA-1 ANTI-TRYPSIN DEFICIENCY
     Dosage: 4000 MG; QW; IV
     Route: 042

REACTIONS (1)
  - THERAPEUTIC RESPONSE DECREASED [None]
